FAERS Safety Report 23638850 (Version 1)
Quarter: 2024Q1

REPORT INFORMATION
  Report Type: Spontaneous
  Country: JP (occurrence: JP)
  Receive Date: 20240315
  Receipt Date: 20240315
  Transmission Date: 20240409
  Serious: Yes (Hospitalization, Other)
  Sender: FDA-Public Use
  Company Number: JP-GSKJP-JP2024JPN031866AA

PATIENT

DRUGS (3)
  1. DAPRODUSTAT [Suspect]
     Active Substance: DAPRODUSTAT
     Indication: Nephrogenic anaemia
     Dosage: UNK
  2. ASPIRIN [Concomitant]
     Active Substance: ASPIRIN
     Indication: Angina pectoris
     Dosage: UNK
  3. CILOSTAZOL [Concomitant]
     Active Substance: CILOSTAZOL
     Indication: Angina pectoris
     Dosage: UNK

REACTIONS (2)
  - Lacunar infarction [Unknown]
  - Sensory disturbance [Unknown]
